FAERS Safety Report 5883217-9 (Version None)
Quarter: 2008Q3

REPORT INFORMATION
  Report Type: 
  Country: None (occurrence: None)
  Receive Date: 20080910
  Receipt Date: 20080820
  Transmission Date: 20090109
  Serious: Yes (Death)
  Sender: FDA-Public Use
  Company Number: 2008SP018029

PATIENT
  Age: 46 Year
  Sex: Female

DRUGS (1)
  1. TEMODAL [Suspect]
     Indication: GLIOBLASTOMA MULTIFORME
     Dosage: 150 MG;QD
     Dates: start: 20080101, end: 20080701

REACTIONS (5)
  - ABSCESS [None]
  - COLITIS [None]
  - CONVULSION [None]
  - METABOLIC ACIDOSIS [None]
  - RENAL FAILURE ACUTE [None]
